FAERS Safety Report 10975381 (Version 4)
Quarter: 2015Q2

REPORT INFORMATION
  Report Type: Spontaneous
  Country: US (occurrence: US)
  Receive Date: 20150401
  Receipt Date: 20150427
  Transmission Date: 20150821
  Serious: Yes (Hospitalization, Other)
  Sender: FDA-Public Use
  Company Number: US-GLAXOSMITHKLINE-US2015042831

PATIENT
  Age: 64 Year
  Sex: Female

DRUGS (6)
  1. COREG CR [Suspect]
     Active Substance: CARVEDILOL PHOSPHATE
     Indication: HYPERTENSION
     Dosage: 10 MG, QD
     Route: 048
     Dates: end: 20150401
  2. KLOR-CON [Concomitant]
     Active Substance: POTASSIUM CHLORIDE
  3. ASPIRIN. [Concomitant]
     Active Substance: ASPIRIN
  4. LOVAZA [Suspect]
     Active Substance: OMEGA-3-ACID ETHYL ESTERS
     Indication: PRODUCT USED FOR UNKNOWN INDICATION
     Dosage: UNK, U
     Route: 065
  5. COREG CR [Suspect]
     Active Substance: CARVEDILOL PHOSPHATE
     Dosage: 40 MG, QD
     Route: 048
  6. LIPITOR [Concomitant]
     Active Substance: ATORVASTATIN CALCIUM

REACTIONS (2)
  - Walking aid user [Recovered/Resolved]
  - Cerebrovascular accident [Recovering/Resolving]

NARRATIVE: CASE EVENT DATE: 2015
